FAERS Safety Report 5663083-7 (Version None)
Quarter: 2008Q1

REPORT INFORMATION
  Report Type: 
  Country: None (occurrence: None)
  Receive Date: 20080313
  Receipt Date: 20080311
  Transmission Date: 20080703
  Serious: Yes (Other)
  Sender: FDA-Public Use
  Company Number: GB-WYE-G01228508

PATIENT
  Sex: Male

DRUGS (2)
  1. IBUPROFEN [Suspect]
     Indication: HAEMORRHOIDS
     Dosage: UNKNOWN
  2. EPANUTIN [Interacting]
     Indication: EPILEPSY
     Dosage: UNKNOWN
     Route: 048

REACTIONS (3)
  - DRUG INTERACTION [None]
  - INCREASED TENDENCY TO BRUISE [None]
  - PERSONALITY CHANGE [None]
